FAERS Safety Report 8917855 (Version 1)
Quarter: 2012Q4

REPORT INFORMATION
  Report Type: Report from Study
  Country: GR (occurrence: GR)
  Receive Date: 20121120
  Receipt Date: 20121120
  Transmission Date: 20130627
  Serious: Yes (Hospitalization)
  Sender: FDA-Public Use
  Company Number: GR-US-EMD SERONO, INC.-7173444

PATIENT
  Age: 38 Year
  Sex: Female

DRUGS (1)
  1. REBIF [Suspect]
     Indication: MULTIPLE SCLEROSIS
     Route: 058
     Dates: start: 201003

REACTIONS (5)
  - Asthenia [Recovering/Resolving]
  - Somnolence [Recovering/Resolving]
  - Pyrexia [Recovering/Resolving]
  - Haematocrit decreased [Not Recovered/Not Resolved]
  - Splenomegaly [Unknown]
